FAERS Safety Report 5924767-6 (Version None)
Quarter: 2008Q4

REPORT INFORMATION
  Report Type: 
  Country: None (occurrence: None)
  Receive Date: 20081017
  Receipt Date: 20081008
  Transmission Date: 20090506
  Serious: Yes (Hospitalization)
  Sender: FDA-Public Use
  Company Number: WAES0802USA01530

PATIENT
  Age: 75 Year
  Sex: Male
  Weight: 71.6683 kg

DRUGS (30)
  1. CAP VORINOSTAT UNK [Suspect]
     Indication: ACUTE MYELOID LEUKAEMIA
     Dosage: 400 MG/DAILY/PO
     Route: 048
     Dates: start: 20080115, end: 20080128
  2. CAP VORINOSTAT UNK [Suspect]
     Indication: ACUTE MYELOID LEUKAEMIA
     Dosage: 400 MG/DAILY/PO
     Route: 048
     Dates: start: 20080212, end: 20080225
  3. CAP VORINOSTAT UNK [Suspect]
     Indication: ACUTE MYELOID LEUKAEMIA
     Dosage: 400 MG/DAILY/PO
     Route: 048
     Dates: start: 20080311, end: 20080324
  4. CAP VORINOSTAT UNK [Suspect]
     Indication: ACUTE MYELOID LEUKAEMIA
     Dosage: 400 MG/DAILY/PO
     Route: 048
     Dates: start: 20080602, end: 20080615
  5. CAP VORINOSTAT UNK [Suspect]
     Indication: ACUTE MYELOID LEUKAEMIA
     Dosage: 400 MG/DAILY/PO
     Route: 048
     Dates: start: 20080714, end: 20080727
  6. INJ DECITABINE UNK [Suspect]
     Indication: ACUTE MYELOID LEUKAEMIA
     Dosage: SEE IMAGE
     Route: 042
     Dates: start: 20080115, end: 20080119
  7. INJ DECITABINE UNK [Suspect]
     Indication: ACUTE MYELOID LEUKAEMIA
     Dosage: SEE IMAGE
     Route: 042
     Dates: start: 20080211, end: 20080216
  8. INJ DECITABINE UNK [Suspect]
     Indication: ACUTE MYELOID LEUKAEMIA
     Dosage: SEE IMAGE
     Route: 042
     Dates: start: 20080311, end: 20080315
  9. INJ DECITABINE UNK [Suspect]
     Indication: ACUTE MYELOID LEUKAEMIA
     Dosage: SEE IMAGE
     Route: 042
     Dates: start: 20080421, end: 20080425
  10. INJ DECITABINE UNK [Suspect]
     Indication: ACUTE MYELOID LEUKAEMIA
     Dosage: SEE IMAGE
     Route: 042
     Dates: start: 20080602, end: 20080606
  11. INJ DECITABINE UNK [Suspect]
     Indication: ACUTE MYELOID LEUKAEMIA
     Dosage: SEE IMAGE
     Route: 042
     Dates: start: 20080714, end: 20080718
  12. INJ DECITABINE UNK [Suspect]
     Indication: ACUTE MYELOID LEUKAEMIA
     Dosage: SEE IMAGE
     Route: 042
     Dates: start: 20080825, end: 20080829
  13. COLACE [Concomitant]
  14. DIOVAN [Concomitant]
  15. FLOMAX [Concomitant]
  16. IMODIUM [Concomitant]
  17. TUMS [Concomitant]
  18. ACYCLOVIR [Concomitant]
  19. ALLOPURINOL [Concomitant]
  20. DICYCLOMINE HYDROCHLORIDE [Concomitant]
  21. MAGNESIUM SULFATE [Concomitant]
  22. OMEGA-3 MARINE TRIGLYCERIDES [Concomitant]
  23. ONDANSETRON [Concomitant]
  24. PANTOPRAZOLE SODIUM [Concomitant]
  25. VITAMINS [Concomitant]
  26. . [Concomitant]
  27. . [Concomitant]
  28. . [Concomitant]
  29. . [Concomitant]
  30. . [Concomitant]

REACTIONS (9)
  - ATRIOVENTRICULAR BLOCK FIRST DEGREE [None]
  - BACTERAEMIA [None]
  - CATHETER RELATED COMPLICATION [None]
  - CELLULITIS [None]
  - DEEP VEIN THROMBOSIS [None]
  - ERYTHEMA [None]
  - FEBRILE NEUTROPENIA [None]
  - NAUSEA [None]
  - WHITE BLOOD CELL COUNT DECREASED [None]
